FAERS Safety Report 4374953-4 (Version None)
Quarter: 2004Q2

REPORT INFORMATION
  Report Type: 
  Country: None (occurrence: None)
  Receive Date: 20040604
  Receipt Date: 20040525
  Transmission Date: 20050107
  Serious: Yes (Hospitalization)
  Sender: FDA-Public Use
  Company Number: 2004PK00937

PATIENT
  Age: 61 Year
  Sex: Male

DRUGS (17)
  1. SEROQUEL [Suspect]
     Dosage: 800 MG DAILY PO
     Route: 048
     Dates: start: 20040115, end: 20040219
  2. ORFIRIL ^DESITIN^ [Suspect]
     Dosage: 600 MG DAILY PO
     Route: 048
     Dates: start: 20040115, end: 20040217
  3. ORFIRIL ^DESITIN^ [Suspect]
     Dosage: 1050 MG DAILY PO
     Route: 048
     Dates: start: 20040218, end: 20040218
  4. ORFIRIL ^DESITIN^ [Suspect]
     Dosage: 1800 MG DAILY PO
     Route: 048
     Dates: start: 20040219, end: 20040219
  5. ORFIRIL ^DESITIN^ [Suspect]
     Dosage: 2400 MG DAILY PO
     Route: 048
     Dates: start: 20040220, end: 20040225
  6. ORFIRIL ^DESITIN^ [Suspect]
     Dosage: 2100 MG DAILY PO
     Route: 048
     Dates: start: 20040226, end: 20040301
  7. ORFIRIL ^DESITIN^ [Suspect]
     Dosage: 1800 MG DAILY PO
     Route: 048
     Dates: start: 20040302, end: 20040315
  8. ORFIRIL ^DESITIN^ [Suspect]
     Dosage: 1300 MG DAILY PO
     Route: 048
     Dates: start: 20040316, end: 20040316
  9. ORFIRIL ^DESITIN^ [Suspect]
     Dosage: 1200 MG DAILY PO
     Route: 048
     Dates: start: 20040317, end: 20040329
  10. ORFIRIL ^DESITIN^ [Suspect]
     Dosage: 1050 MG DAILY PO
     Route: 048
     Dates: start: 20040330
  11. QUILONORM RETARD [Suspect]
     Dosage: 12.2 MMOL DAILY
     Dates: start: 20040223, end: 20040225
  12. QUILONORM RETARD [Suspect]
     Dosage: 18.3 MMOL DAILY
     Dates: start: 20040226, end: 20040406
  13. TRUXAL [Concomitant]
  14. COAPROVEL [Concomitant]
  15. LORAZEPAM [Concomitant]
  16. SORTIS ^GOEDECKE^ [Concomitant]
  17. ASPIRIN [Concomitant]

REACTIONS (4)
  - DRUG LEVEL INCREASED [None]
  - LACRIMAL GLAND ENLARGEMENT [None]
  - PARKINSONISM [None]
  - RESTLESS LEGS SYNDROME [None]
